FAERS Safety Report 9359759 (Version 1)
Quarter: 2013Q2

REPORT INFORMATION
  Report Type: Spontaneous
  Country: US (occurrence: US)
  Receive Date: 20130621
  Receipt Date: 20130621
  Transmission Date: 20140414
  Serious: No
  Sender: FDA-Public Use
  Company Number: US-US-EMD SERONO, INC.-7218585

PATIENT
  Age: 45 Year
  Sex: Female
  Weight: 75 kg

DRUGS (1)
  1. REBIF [Suspect]
     Indication: MULTIPLE SCLEROSIS
     Route: 058
     Dates: start: 20120601

REACTIONS (4)
  - Hot flush [Unknown]
  - Pain in extremity [Unknown]
  - Influenza like illness [Unknown]
  - Fatigue [Unknown]
